FAERS Safety Report 7606145-7 (Version None)
Quarter: 2011Q3

REPORT INFORMATION
  Report Type: 
  Country: None (occurrence: None)
  Receive Date: 20110713
  Receipt Date: 20110711
  Transmission Date: 20111222
  Serious: Yes (Death, Disabling, Other)
  Sender: FDA-Public Use
  Company Number: US-AMGEN-USASP2010005772

PATIENT
  Age: 82 Year
  Sex: Female
  Weight: 73.923 kg

DRUGS (14)
  1. ZOLPIDEM TARTRATE [Concomitant]
  2. OMEPRAZOLE [Concomitant]
  3. CORTICOSTEROIDS [Concomitant]
     Indication: IDIOPATHIC THROMBOCYTOPENIC PURPURA
     Dosage: UNK
     Dates: start: 20100614
  4. OXYGEN [Concomitant]
  5. RECLAST [Concomitant]
     Dosage: UNK
  6. TUMS                               /00108001/ [Concomitant]
  7. CENTRUM SILVER                     /01292501/ [Concomitant]
  8. MIRALAX [Concomitant]
  9. NPLATE [Suspect]
     Indication: IDIOPATHIC THROMBOCYTOPENIC PURPURA
     Dosage: 75 A?G, QWK
     Route: 058
     Dates: start: 20100727, end: 20100924
  10. PREDNISONE [Concomitant]
  11. METOPROLOL SUCCINATE [Concomitant]
     Dosage: UNK
  12. SYNTHROID [Concomitant]
     Dosage: UNK
  13. CLOTRIMAZOLE AND BETAMETHASONE DIPROPIONATE [Concomitant]
  14. FOLBEE                             /01079901/ [Concomitant]

REACTIONS (8)
  - PULMONARY FIBROSIS [None]
  - THROMBOCYTOPENIA [None]
  - DIZZINESS [None]
  - CARDIAC ARREST [None]
  - LUNG INFILTRATION [None]
  - INTERSTITIAL LUNG DISEASE [None]
  - CARDIOMEGALY [None]
  - OEDEMA PERIPHERAL [None]
